FAERS Safety Report 4466997-9 (Version None)
Quarter: 2004Q4

REPORT INFORMATION
  Report Type: 
  Country: None (occurrence: None)
  Receive Date: 20041004
  Receipt Date: 20040903
  Transmission Date: 20050328
  Serious: Yes (Hospitalization, Other)
  Sender: FDA-Public Use
  Company Number: 2004067453

PATIENT
  Sex: Male

DRUGS (2)
  1. LIPITOR [Suspect]
     Indication: ILL-DEFINED DISORDER
     Dates: start: 20040101
  2. NICOTINIC ACID [Concomitant]

REACTIONS (4)
  - AMNESIA [None]
  - BRADYCARDIA [None]
  - FALL [None]
  - UPPER LIMB FRACTURE [None]
